FAERS Safety Report 7458315-9 (Version None)
Quarter: 2011Q2

REPORT INFORMATION
  Report Type: 
  Country: None (occurrence: None)
  Receive Date: 20110504
  Receipt Date: 20110428
  Transmission Date: 20111010
  Serious: Yes (Hospitalization)
  Sender: FDA-Public Use
  Company Number: DE-ABBOTT-11P-062-0719512-00

PATIENT
  Age: 46 Year
  Sex: Male
  Weight: 55 kg

DRUGS (6)
  1. CREON [Concomitant]
     Indication: PRODUCT USED FOR UNKNOWN INDICATION
  2. BUDESONIDE [Concomitant]
     Indication: PRODUCT USED FOR UNKNOWN INDICATION
  3. HUMIRA [Suspect]
     Indication: CROHN'S DISEASE
     Route: 058
     Dates: start: 20090801, end: 20110105
  4. PANTOPRAZOLE SODIUM [Concomitant]
     Indication: PRODUCT USED FOR UNKNOWN INDICATION
     Dates: start: 20110105
  5. HUMIRA [Suspect]
     Dates: start: 20110401
  6. 5-ASA/SULFAASALAZIN [Concomitant]
     Indication: PRODUCT USED FOR UNKNOWN INDICATION

REACTIONS (2)
  - ILEAL STENOSIS [None]
  - INTESTINAL ANASTOMOSIS COMPLICATION [None]
